FAERS Safety Report 25214771 (Version 5)
Quarter: 2025Q2

REPORT INFORMATION
  Report Type: Spontaneous
  Country: US (occurrence: US)
  Receive Date: 20250418
  Receipt Date: 20250513
  Transmission Date: 20250717
  Serious: No
  Sender: PFIZER
  Company Number: US-PFIZER INC-202400329178

PATIENT
  Age: 13 Year
  Sex: Female
  Weight: 32.7 kg

DRUGS (2)
  1. GENOTROPIN [Suspect]
     Active Substance: SOMATROPIN
     Indication: Growth hormone deficiency
     Route: 058
     Dates: start: 20240107
  2. GENOTROPIN [Suspect]
     Active Substance: SOMATROPIN
     Route: 058
     Dates: start: 202407

REACTIONS (6)
  - Product dose omission in error [Unknown]
  - Drug dose omission by device [Unknown]
  - Liquid product physical issue [Unknown]
  - Product reconstitution quality issue [Unknown]
  - Product deposit [Unknown]
  - Device issue [Unknown]

NARRATIVE: CASE EVENT DATE: 20241213
